FAERS Safety Report 5360286-6 (Version None)
Quarter: 2007Q2

REPORT INFORMATION
  Report Type: 
  Country: None (occurrence: None)
  Receive Date: 20070614
  Receipt Date: 20070529
  Transmission Date: 20071010
  Serious: Yes (Other)
  Sender: FDA-Public Use
  Company Number: 2007SP011269

PATIENT
  Age: 2 Year
  Sex: Male

DRUGS (4)
  1. CLARITIN [Suspect]
     Indication: ECZEMA
     Dosage: SEE IMAGE
     Route: 048
     Dates: start: 20070415, end: 20070528
  2. CLARITIN [Suspect]
     Indication: ECZEMA
     Dosage: SEE IMAGE
     Route: 048
     Dates: start: 20070529, end: 20070602
  3. NASONEX [Concomitant]
  4. ALBUTEROL [Concomitant]

REACTIONS (7)
  - ASTHMA [None]
  - CONDITION AGGRAVATED [None]
  - ECZEMA [None]
  - INTENTIONAL OVERDOSE [None]
  - NASAL CONGESTION [None]
  - OFF LABEL USE [None]
  - SOMNOLENCE [None]
